FAERS Safety Report 5872157-7 (Version None)
Quarter: 2008Q3

REPORT INFORMATION
  Report Type: 
  Country: None (occurrence: None)
  Receive Date: 20080905
  Receipt Date: 20080826
  Transmission Date: 20090109
  Serious: Yes (Death, Life-Threatening, Hospitalization, Other)
  Sender: FDA-Public Use
  Company Number: US-CELGENEUS-163-21880-08081356

PATIENT
  Sex: Female
  Weight: 94.341 kg

DRUGS (11)
  1. REVLIMID [Suspect]
     Indication: ACUTE LYMPHOCYTIC LEUKAEMIA
     Route: 048
     Dates: start: 20080814, end: 20080821
  2. LASIX [Concomitant]
     Indication: OEDEMA PERIPHERAL
     Route: 051
     Dates: start: 20080801, end: 20080801
  3. LASIX [Concomitant]
     Indication: DYSPNOEA
     Dosage: 1-2 TABLETS
     Route: 048
  4. CLARITIN [Concomitant]
     Indication: DRUG USE FOR UNKNOWN INDICATION
     Route: 065
  5. VALTREX [Concomitant]
     Indication: DRUG USE FOR UNKNOWN INDICATION
     Route: 065
  6. BACTRIM DS [Concomitant]
     Indication: DRUG USE FOR UNKNOWN INDICATION
     Route: 048
  7. TOPROL-XL [Concomitant]
     Indication: DRUG USE FOR UNKNOWN INDICATION
     Route: 048
  8. AVELOX [Concomitant]
     Indication: DRUG USE FOR UNKNOWN INDICATION
     Route: 048
  9. ALLOPURINOL [Concomitant]
     Indication: DRUG USE FOR UNKNOWN INDICATION
     Route: 048
  10. BICARBONATE [Concomitant]
     Indication: LACTIC ACIDOSIS
     Route: 051
     Dates: start: 20080801, end: 20080801
  11. AMIODARONE HCL [Concomitant]
     Indication: ATRIAL FIBRILLATION
     Route: 051
     Dates: start: 20080801, end: 20080801

REACTIONS (15)
  - ATRIAL FIBRILLATION [None]
  - BRADYCARDIA [None]
  - CARDIAC ARREST [None]
  - CARDIOVASCULAR DISORDER [None]
  - CONDITION AGGRAVATED [None]
  - DISEASE PROGRESSION [None]
  - DYSPNOEA EXERTIONAL [None]
  - FATIGUE [None]
  - FUNGAL INFECTION [None]
  - HYPOTENSION [None]
  - METABOLIC ACIDOSIS [None]
  - MULTI-ORGAN FAILURE [None]
  - OEDEMA PERIPHERAL [None]
  - PERFORMANCE STATUS DECREASED [None]
  - RENAL FAILURE ACUTE [None]
